FAERS Safety Report 4348280-5 (Version None)
Quarter: 2004Q2

REPORT INFORMATION
  Report Type: 
  Country: None (occurrence: None)
  Receive Date: 20040422
  Receipt Date: 20040406
  Transmission Date: 20050107
  Serious: Yes (Hospitalization)
  Sender: FDA-Public Use
  Company Number: US_0404102004

PATIENT
  Age: 19 Year
  Sex: Female

DRUGS (3)
  1. VANCOMYCIN [Suspect]
     Indication: SUBCUTANEOUS ABSCESS
     Dosage: 1 G/2 DAY
     Dates: start: 20040224, end: 20040225
  2. INSULIN NOVOLIN [Concomitant]
  3. MORPHINE [Concomitant]

REACTIONS (2)
  - FACE OEDEMA [None]
  - PRURITUS [None]
